FAERS Safety Report 5763752-4 (Version None)
Quarter: 2008Q2

REPORT INFORMATION
  Report Type: 
  Country: None (occurrence: None)
  Receive Date: 20080610
  Receipt Date: 20080603
  Transmission Date: 20081010
  Serious: Yes (Hospitalization)
  Sender: FDA-Public Use
  Company Number: ES-ASTRAZENECA-2008AC01417

PATIENT
  Age: 58 Year
  Sex: Female

DRUGS (7)
  1. SEROQUEL [Suspect]
     Dates: start: 20071001, end: 20080401
  2. EPILEXTER [Suspect]
     Indication: DEPRESSION
     Route: 048
     Dates: start: 20070401, end: 20080301
  3. XENICAL [Suspect]
     Dates: start: 20071001
  4. IDALPREM [Suspect]
     Dates: start: 20071001, end: 20080401
  5. DEPAMIDE [Suspect]
     Dates: start: 20070101
  6. ATORVASTATIN CALCIUM [Suspect]
     Dates: start: 20070101
  7. AMERIDE [Suspect]
     Dosage: 5/50MG TABLETS
     Dates: start: 20070101

REACTIONS (2)
  - DEPRESSED LEVEL OF CONSCIOUSNESS [None]
  - HYPONATRAEMIA [None]
